FAERS Safety Report 9479082 (Version 6)
Quarter: 2014Q1

REPORT INFORMATION
  Report Type: Spontaneous
  Country: US (occurrence: US)
  Receive Date: 20130827
  Receipt Date: 20140206
  Transmission Date: 20141002
  Serious: Yes (Disabling)
  Sender: FDA-Public Use
  Company Number: US-GLAXOSMITHKLINE-A1037358A

PATIENT
  Age: 67 Year
  Sex: Female

DRUGS (4)
  1. TYKERB [Suspect]
     Indication: BREAST CANCER
     Dosage: 1250MG PER DAY
     Route: 048
     Dates: start: 201306
  2. XELODA [Suspect]
  3. XGEVA [Concomitant]
  4. VITAMIN [Concomitant]

REACTIONS (17)
  - Nausea [Recovering/Resolving]
  - Erythema [Recovering/Resolving]
  - Dry skin [Recovering/Resolving]
  - Pain of skin [Recovering/Resolving]
  - Contusion [Recovering/Resolving]
  - Palmar-plantar erythrodysaesthesia syndrome [Recovering/Resolving]
  - Skin fissures [Recovering/Resolving]
  - Stomatitis [Recovering/Resolving]
  - Drug ineffective [Unknown]
  - Incorrect dose administered [Unknown]
  - Product quality issue [Unknown]
  - Adverse drug reaction [Recovering/Resolving]
  - Disease progression [Recovering/Resolving]
  - Pleural effusion [Recovering/Resolving]
  - Pulmonary hilum mass [Recovering/Resolving]
  - Lymphadenopathy [Recovering/Resolving]
  - Metastases to bone [Recovering/Resolving]
